FAERS Safety Report 6016124-1 (Version None)
Quarter: 2008Q4

REPORT INFORMATION
  Report Type: 
  Country: None (occurrence: None)
  Receive Date: 20081222
  Receipt Date: 20081212
  Transmission Date: 20090506
  Serious: Yes (Death, Hospitalization)
  Sender: FDA-Public Use
  Company Number: GB-PFIZER INC-2008098841

PATIENT

DRUGS (10)
  1. ATORVASTATIN CALCIUM [Suspect]
     Route: 048
     Dates: start: 20061220
  2. BENDROFLUAZIDE [Suspect]
     Route: 048
     Dates: start: 20030214, end: 20081028
  3. LISINOPRIL [Suspect]
     Route: 048
     Dates: start: 20060313, end: 20081028
  4. ADIZEM-XL [Concomitant]
     Indication: ANGINA PECTORIS
     Route: 048
     Dates: start: 20061116
  5. ADIZEM-XL [Concomitant]
     Indication: HYPERTENSION
  6. ASPIRIN [Concomitant]
     Indication: PROPHYLAXIS
     Route: 048
     Dates: start: 20050603
  7. NITROGLYCERIN [Concomitant]
     Indication: ANGINA PECTORIS
     Dates: start: 20040505
  8. METFORMIN HCL [Concomitant]
     Indication: DIABETES MELLITUS
     Route: 048
     Dates: start: 20070420
  9. NICORANDIL [Concomitant]
     Indication: ANGINA PECTORIS
     Route: 048
     Dates: start: 20070124
  10. SOLIFENACIN [Concomitant]
     Indication: POLLAKIURIA
     Route: 048
     Dates: start: 20080716

REACTIONS (2)
  - MULTI-ORGAN FAILURE [None]
  - PANCREATITIS ACUTE [None]
